FAERS Safety Report 6910022-4 (Version None)
Quarter: 2010Q3

REPORT INFORMATION
  Report Type: 
  Country: None (occurrence: None)
  Receive Date: 20100806
  Receipt Date: 20100728
  Transmission Date: 20110219
  Serious: No
  Sender: FDA-Public Use
  Company Number: US-BIOGENIDEC-2010BI026369

PATIENT
  Sex: Female

DRUGS (1)
  1. AVONEX [Suspect]
     Indication: MULTIPLE SCLEROSIS
     Route: 030
     Dates: start: 19980301, end: 20081201

REACTIONS (6)
  - BALANCE DISORDER [None]
  - DRUG INEFFECTIVE [None]
  - FALL [None]
  - GAIT DISTURBANCE [None]
  - MEMORY IMPAIRMENT [None]
  - VISUAL IMPAIRMENT [None]
